FAERS Safety Report 12929707 (Version 3)
Quarter: 2017Q1

REPORT INFORMATION
  Report Type: Spontaneous
  Country: DE (occurrence: DE)
  Receive Date: 20161110
  Receipt Date: 20170208
  Transmission Date: 20170428
  Serious: Yes (Other)
  Sender: FDA-Public Use
  Company Number: DE-AMGEN-DEUSP2016155553

PATIENT
  Age: 80 Year
  Sex: Male

DRUGS (1)
  1. XGEVA [Suspect]
     Active Substance: DENOSUMAB
     Indication: PROSTATE CANCER
     Dosage: 120 MG, Q4WK
     Route: 065

REACTIONS (8)
  - Loose tooth [Unknown]
  - Mouth haemorrhage [Unknown]
  - Toothache [Unknown]
  - Local swelling [Unknown]
  - Gingival erythema [Unknown]
  - Oral pustule [Unknown]
  - Abscess jaw [Unknown]
  - Gingival pain [Unknown]

NARRATIVE: CASE EVENT DATE: 201607
